FAERS Safety Report 6738038-1 (Version None)
Quarter: 2010Q2

REPORT INFORMATION
  Report Type: 
  Country: None (occurrence: None)
  Receive Date: 20100519
  Receipt Date: 20100511
  Transmission Date: 20101027
  Serious: Yes (Other)
  Sender: FDA-Public Use
  Company Number: UKP10000059

PATIENT
  Age: 66 Year
  Sex: Female
  Weight: 66 kg

DRUGS (6)
  1. ACTONEL [Suspect]
     Indication: OSTEOPOROSIS
     Dosage: 70 MG, 1/WEEK, ORAL
     Route: 048
     Dates: start: 20060607, end: 20100426
  2. ADCAL D3 (CALCIUM CARBONATE, COLECALCIFEROL) [Concomitant]
  3. AMITRIPTYLINE HYDROCHLORIDE [Concomitant]
  4. LANSOPRAZOLE [Concomitant]
  5. MONTELUKAST SODIUM [Concomitant]
  6. ATORVASTATIN CALCIUM [Concomitant]

REACTIONS (2)
  - OSTEONECROSIS [None]
  - PAIN [None]
